FAERS Safety Report 7795516-4 (Version None)
Quarter: 2011Q4

REPORT INFORMATION
  Report Type: 
  Country: None (occurrence: None)
  Receive Date: 20111004
  Receipt Date: 20110316
  Transmission Date: 20120403
  Serious: No
  Sender: FDA-Public Use
  Company Number: US-BAYER-2011-024622

PATIENT
  Age: 75 Year
  Sex: Male

DRUGS (7)
  1. LEVITRA [Suspect]
     Indication: ERECTILE DYSFUNCTION
     Dosage: 20 MG, PRN
     Route: 048
  2. HYDROCHLOROTHIAZIDE [Concomitant]
     Dosage: 12.5 MG, QD
     Route: 048
  3. MULTI-VITAMIN [Concomitant]
     Dosage: UNK UNK, QD
     Route: 048
  4. COQ10 [Concomitant]
     Dosage: UNK UNK, QD
     Route: 048
  5. LOSARTAN POTASSIUM [Concomitant]
     Dosage: 50 MG, QD
     Route: 048
  6. LEVOTHYROXINE SODIUM [Concomitant]
     Dosage: 0.1 MG, QD
     Route: 048
  7. VITAMIN B-12 [Concomitant]

REACTIONS (4)
  - PALPITATIONS [None]
  - HEART RATE INCREASED [None]
  - DRUG INEFFECTIVE [None]
  - FLUSHING [None]
